FAERS Safety Report 6129582-9 (Version None)
Quarter: 2009Q1

REPORT INFORMATION
  Report Type: 
  Country: None (occurrence: None)
  Receive Date: 20090324
  Receipt Date: 20090312
  Transmission Date: 20090719
  Serious: Yes (Disabling, Other)
  Sender: FDA-Public Use
  Company Number: FR-PFIZER INC-2009183457

PATIENT

DRUGS (1)
  1. ALDACTONE [Suspect]
     Dosage: 1.5 DF, 1X/DAY

REACTIONS (3)
  - CONDITION AGGRAVATED [None]
  - RAYNAUD'S PHENOMENON [None]
  - SKIN ULCER [None]
